FAERS Safety Report 11537082 (Version 1)
Quarter: 2015Q3

REPORT INFORMATION
  Report Type: Spontaneous
  Country: CN (occurrence: CN)
  Receive Date: 20150922
  Receipt Date: 20150922
  Transmission Date: 20151125
  Serious: Yes (Other)
  Sender: FDA-Public Use
  Company Number: CN-B.I. PHARMACEUTICALS,INC./RIDGEFIELD-2015-BI-50740BI

PATIENT
  Age: 74 Year
  Sex: Female

DRUGS (4)
  1. LEVAMLODIPINE BESILATE [Suspect]
     Active Substance: LEVAMLODIPINE BESILATE
     Indication: PRODUCT USED FOR UNKNOWN INDICATION
     Dosage: 1 ANZ
     Route: 065
  2. ACARBOSE. [Suspect]
     Active Substance: ACARBOSE
     Indication: PRODUCT USED FOR UNKNOWN INDICATION
     Route: 065
  3. ISOSORBIDE MONONITRATE. [Suspect]
     Active Substance: ISOSORBIDE MONONITRATE
     Indication: PRODUCT USED FOR UNKNOWN INDICATION
     Route: 065
  4. TELMISARTAN. [Suspect]
     Active Substance: TELMISARTAN
     Indication: PRODUCT USED FOR UNKNOWN INDICATION
     Dosage: DAILY DOSE: 1.5 TABLET DAILY
     Route: 065

REACTIONS (4)
  - Syncope [Recovered/Resolved]
  - Syncope [Recovered/Resolved]
  - Ear pain [Unknown]
  - Anaemia [Unknown]

NARRATIVE: CASE EVENT DATE: 20140419
